FAERS Safety Report 4767294-4 (Version None)
Quarter: 2005Q3

REPORT INFORMATION
  Report Type: 
  Country: None (occurrence: None)
  Receive Date: 20050913
  Receipt Date: 20050830
  Transmission Date: 20060218
  Serious: Yes (Hospitalization)
  Sender: FDA-Public Use
  Company Number: DE-GLAXOSMITHKLINE-B0277103C

PATIENT
  Sex: Male

DRUGS (9)
  1. ROSIGLITAZONE [Suspect]
     Indication: DIABETES MELLITUS NON-INSULIN-DEPENDENT
     Dates: start: 20020308
  2. AMARYL [Concomitant]
     Indication: DIABETES MELLITUS NON-INSULIN-DEPENDENT
     Dates: start: 19971201
  3. MILURIT [Concomitant]
  4. QUERTO [Concomitant]
  5. ASPIRIN [Concomitant]
  6. ISCOVER [Concomitant]
  7. PANTOZOL [Concomitant]
  8. SORTIS [Concomitant]
  9. METOPROLOL SUCCINATE [Concomitant]

REACTIONS (1)
  - ANGINA PECTORIS [None]
